FAERS Safety Report 9759555 (Version 1)
Quarter: 2013Q4

REPORT INFORMATION
  Report Type: Spontaneous
  Country: US (occurrence: US)
  Receive Date: 20131216
  Receipt Date: 20131216
  Transmission Date: 20140711
  Serious: No
  Sender: FDA-Public Use
  Company Number: US-GILEAD-2010-0028141

PATIENT
  Sex: Female
  Weight: 62.6 kg

DRUGS (7)
  1. LETAIRIS [Suspect]
     Indication: PULMONARY ARTERIAL HYPERTENSION
     Route: 048
     Dates: start: 20100105
  2. ADCIRCA [Concomitant]
  3. PREDNISONE [Concomitant]
  4. PREVACID [Concomitant]
  5. LASIX [Concomitant]
  6. TYLENOL [Concomitant]
  7. WARFARIN [Concomitant]

REACTIONS (2)
  - Oropharyngeal pain [Unknown]
  - Nasal discomfort [Unknown]
